FAERS Safety Report 15980621 (Version 4)
Quarter: 2020Q1

REPORT INFORMATION
  Report Type: Spontaneous
  Country: US (occurrence: US)
  Receive Date: 20190219
  Receipt Date: 20200120
  Transmission Date: 20200409
  Serious: Yes (Disabling)
  Sender: FDA-Public Use
  Company Number: US-PFIZER INC-2019026532

PATIENT
  Age: 28 Year
  Sex: Female

DRUGS (2)
  1. DILANTIN [Suspect]
     Active Substance: PHENYTOIN
     Indication: EPILEPSY
     Dosage: 50 MG, 2X/DAY
     Route: 048
  2. DILANTIN [Suspect]
     Active Substance: PHENYTOIN
     Indication: SEIZURE
     Dosage: 100 MG, 2X/DAY
     Route: 048
     Dates: start: 20191114

REACTIONS (3)
  - Prescription drug used without a prescription [Unknown]
  - Physical disability [Unknown]
  - Mental disability [Unknown]

NARRATIVE: CASE EVENT DATE: 201902
